FAERS Safety Report 7391823-8 (Version None)
Quarter: 2011Q2

REPORT INFORMATION
  Report Type: 
  Country: None (occurrence: None)
  Receive Date: 20110404
  Receipt Date: 20110325
  Transmission Date: 20111010
  Serious: Yes (Hospitalization, Other)
  Sender: FDA-Public Use
  Company Number: US-ROCHE-767816

PATIENT
  Age: 61 Year
  Sex: Male

DRUGS (1)
  1. BONIVA [Suspect]
     Indication: OSTEOPOROSIS
     Route: 048
     Dates: start: 20060101, end: 20100803

REACTIONS (6)
  - MUSCULOSKELETAL PAIN [None]
  - SPINAL OPERATION [None]
  - SPINAL FRACTURE [None]
  - FOOT FRACTURE [None]
  - HAND FRACTURE [None]
  - BONE PAIN [None]
